FAERS Safety Report 11768700 (Version 2)
Quarter: 2016Q1

REPORT INFORMATION
  Report Type: Spontaneous
  Country: US (occurrence: US)
  Receive Date: 20151123
  Receipt Date: 20160119
  Transmission Date: 20160525
  Serious: Yes (Hospitalization, Other)
  Sender: FDA-Public Use
  Company Number: US-AUROBINDO-AUR-APL-2015-10494

PATIENT
  Age: 45 Year
  Sex: Female
  Weight: 98 kg

DRUGS (4)
  1. CLONAZEPAM. [Concomitant]
     Active Substance: CLONAZEPAM
     Indication: MOOD ALTERED
     Dosage: 0.5MG QAM AND 1MG QHS
     Route: 065
  2. LAMOTRIGINE. [Suspect]
     Active Substance: LAMOTRIGINE
     Dosage: 200 MG, DAILY
     Route: 065
  3. LAMOTRIGINE. [Suspect]
     Active Substance: LAMOTRIGINE
     Indication: MOOD ALTERED
     Dosage: 225 MG, DAILY
     Route: 065
  4. OMEPRAZOLE. [Concomitant]
     Active Substance: OMEPRAZOLE
     Indication: MOOD ALTERED
     Dosage: 20 MG, DAILY
     Route: 065

REACTIONS (2)
  - Tic [Recovered/Resolved]
  - Excessive eye blinking [Recovered/Resolved]
